FAERS Safety Report 5149435-2 (Version None)
Quarter: 2006Q4

REPORT INFORMATION
  Report Type: 
  Country: None (occurrence: None)
  Receive Date: 20061113
  Receipt Date: 20060113
  Transmission Date: 20070319
  Serious: No
  Sender: FDA-Public Use
  Company Number: 432576

PATIENT
  Age: 78 Year
  Sex: Male

DRUGS (10)
  1. COREG [Suspect]
     Dosage: 3.125MG PER DAY
     Route: 048
  2. ZETIA [Concomitant]
  3. ACTONEL [Concomitant]
  4. MULTI-VITAMIN [Concomitant]
  5. CALCIUM [Concomitant]
  6. ASPIRIN [Concomitant]
  7. RED YEAST RICE [Concomitant]
  8. GARLIC [Concomitant]
  9. MAGNESIUM [Concomitant]
  10. FISH OIL [Concomitant]

REACTIONS (1)
  - MACULOPATHY [None]
